FAERS Safety Report 6858097-5 (Version None)
Quarter: 2010Q3

REPORT INFORMATION
  Report Type: 
  Country: None (occurrence: None)
  Receive Date: 20100719
  Receipt Date: 20080612
  Transmission Date: 20110219
  Serious: No
  Sender: FDA-Public Use
  Company Number: US-PFIZER INC-2008008620

PATIENT
  Sex: Male
  Weight: 109.09 kg

DRUGS (11)
  1. CHANTIX [Suspect]
     Indication: SMOKING CESSATION THERAPY
     Route: 048
     Dates: start: 20080101
  2. NICOTINELL LOZENGE [Concomitant]
  3. PERCOCET [Concomitant]
  4. SOMA [Concomitant]
  5. VALIUM [Concomitant]
  6. MARINOL [Concomitant]
  7. LEVBID [Concomitant]
  8. ALL OTHER THERAPEUTIC PRODUCTS [Concomitant]
  9. ANTIVERT ^PFIZER^ [Concomitant]
  10. GABAPENTIN [Concomitant]
  11. LIDODERM [Concomitant]

REACTIONS (3)
  - INCREASED APPETITE [None]
  - INSOMNIA [None]
  - WEIGHT INCREASED [None]
